FAERS Safety Report 10957081 (Version 2)
Quarter: 2015Q2

REPORT INFORMATION
  Report Type: Spontaneous
  Country: US (occurrence: US)
  Receive Date: 20150326
  Receipt Date: 20150402
  Transmission Date: 20150821
  Serious: No
  Sender: FDA-Public Use
  Company Number: US-PFIZER INC-2015104446

PATIENT
  Sex: Female

DRUGS (2)
  1. ALAVERT ALLERGY [Suspect]
     Active Substance: LORATADINE
     Dosage: UNK
  2. ALAVERT ALLERGY [Suspect]
     Active Substance: LORATADINE
     Dosage: UNK

REACTIONS (2)
  - Drug effect incomplete [Unknown]
  - Drug intolerance [Unknown]
